FAERS Safety Report 4604384-0 (Version None)
Quarter: 2005Q2

REPORT INFORMATION
  Report Type: 
  Country: None (occurrence: None)
  Receive Date: 20050214
  Receipt Date: 20041116
  Transmission Date: 20051028
  Serious: No
  Sender: FDA-Public Use
  Company Number: US_0411108489

PATIENT
  Age: 91 Year
  Sex: Male
  Weight: 70 kg

DRUGS (4)
  1. CIALIS [Suspect]
     Dosage: 10 MG
     Dates: start: 20041115
  2. LIPITOR [Concomitant]
  3. DIGOXIN [Concomitant]
  4. WARFARIN SODIUM [Concomitant]

REACTIONS (1)
  - DRUG INEFFECTIVE [None]
